FAERS Safety Report 21146435 (Version 1)
Quarter: 2022Q3

REPORT INFORMATION
  Report Type: Spontaneous
  Country: US (occurrence: US)
  Receive Date: 20220729
  Receipt Date: 20220729
  Transmission Date: 20221026
  Serious: Yes (Other)
  Sender: FDA-Public Use
  Company Number: US-drreddys-LIT/USA/22/0152753

PATIENT
  Age: 79 Year
  Sex: Female

DRUGS (17)
  1. ESZOPICLONE [Suspect]
     Active Substance: ESZOPICLONE
     Indication: Sleep disorder
  2. ESZOPICLONE [Suspect]
     Active Substance: ESZOPICLONE
     Indication: Generalised anxiety disorder
  3. ESZOPICLONE [Suspect]
     Active Substance: ESZOPICLONE
     Indication: Hypertension
  4. LORAZEPAM [Suspect]
     Active Substance: LORAZEPAM
     Indication: Generalised anxiety disorder
  5. RISPERIDONE [Suspect]
     Active Substance: RISPERIDONE
     Indication: Hallucination, tactile
  6. LISINOPRIL [Suspect]
     Active Substance: LISINOPRIL
     Indication: Sleep disorder
  7. LISINOPRIL [Suspect]
     Active Substance: LISINOPRIL
     Indication: Generalised anxiety disorder
  8. LISINOPRIL [Suspect]
     Active Substance: LISINOPRIL
     Indication: Hypertension
  9. METOPROLOL TARTRATE [Suspect]
     Active Substance: METOPROLOL TARTRATE
     Indication: Hypertension
  10. METFORMIN [Concomitant]
     Active Substance: METFORMIN HYDROCHLORIDE
     Indication: Product used for unknown indication
  11. HYDROXYZINE HYDROCHLORIDE [Concomitant]
     Active Substance: HYDROXYZINE HYDROCHLORIDE
     Indication: Insomnia
  12. AMLODIPINE [Concomitant]
     Active Substance: AMLODIPINE BESYLATE
     Indication: Product used for unknown indication
  13. SIMVASTATIN [Concomitant]
     Active Substance: SIMVASTATIN
     Indication: Product used for unknown indication
  14. ESCITALOPRAM [Concomitant]
     Active Substance: ESCITALOPRAM OXALATE
     Indication: Product used for unknown indication
  15. DICLOFENAC [Concomitant]
     Active Substance: DICLOFENAC
     Indication: Product used for unknown indication
  16. TIMOLOL [Concomitant]
     Active Substance: TIMOLOL
     Indication: Product used for unknown indication
  17. TRIAMCINOLONE [Concomitant]
     Active Substance: TRIAMCINOLONE
     Indication: Product used for unknown indication

REACTIONS (1)
  - Hallucination, visual [Recovered/Resolved]
